FAERS Safety Report 5192418-7 (Version None)
Quarter: 2006Q4

REPORT INFORMATION
  Report Type: 
  Country: None (occurrence: None)
  Receive Date: 20061220
  Receipt Date: 20061211
  Transmission Date: 20070319
  Serious: Yes (Hospitalization, Other)
  Sender: FDA-Public Use
  Company Number: HQWYE935404AUG04

PATIENT
  Age: 49 Year
  Sex: Female
  Weight: 67.19 kg

DRUGS (1)
  1. PREMPHASE 14/14 [Suspect]
     Indication: HORMONE REPLACEMENT THERAPY

REACTIONS (9)
  - BREAST CANCER FEMALE [None]
  - BREAST CANCER METASTATIC [None]
  - DEPRESSION [None]
  - MEDIAN NERVE INJURY [None]
  - METASTASES TO LYMPH NODES [None]
  - METRORRHAGIA [None]
  - OESTROGEN RECEPTOR ASSAY POSITIVE [None]
  - PAIN [None]
  - PROGESTERONE RECEPTOR ASSAY POSITIVE [None]
